FAERS Safety Report 7215153-X (Version None)
Quarter: 2011Q1

REPORT INFORMATION
  Report Type: 
  Country: None (occurrence: None)
  Receive Date: 20110107
  Receipt Date: 20100916
  Transmission Date: 20110831
  Serious: No
  Sender: FDA-Public Use
  Company Number: A0881489A

PATIENT
  Age: 66 Year
  Sex: Female

DRUGS (11)
  1. CALCIUM [Concomitant]
  2. LOVAZA [Suspect]
     Dosage: 2G TWICE PER DAY
     Route: 048
     Dates: start: 20091101, end: 20100801
  3. COREG [Concomitant]
  4. OMEPRAZOLE [Concomitant]
  5. CENTRUM SILVER [Concomitant]
  6. PLAVIX [Concomitant]
  7. MICARDIS [Concomitant]
  8. CLONAZEPAM [Concomitant]
  9. LEVOXYL [Concomitant]
  10. PRAVACHOL [Concomitant]
  11. NORVASC [Concomitant]

REACTIONS (1)
  - SKIN ULCER [None]
